FAERS Safety Report 10239959 (Version 1)
Quarter: 2014Q2

REPORT INFORMATION
  Report Type: Spontaneous
  Country: US (occurrence: US)
  Receive Date: 20140616
  Receipt Date: 20140616
  Transmission Date: 20141212
  Serious: No
  Sender: FDA-Public Use
  Company Number: US-GILEAD-2014-0105425

PATIENT
  Sex: Female

DRUGS (1)
  1. LETAIRIS [Suspect]
     Indication: PRODUCT USED FOR UNKNOWN INDICATION
     Dosage: 10 MG, QD
     Route: 065
     Dates: start: 20110831

REACTIONS (6)
  - Syncope [Unknown]
  - Fall [Unknown]
  - Periorbital contusion [Unknown]
  - Cough [Unknown]
  - Oedema [Unknown]
  - Dizziness [Unknown]
